FAERS Safety Report 23484568 (Version 3)
Quarter: 2025Q3

REPORT INFORMATION
  Report Type: Spontaneous
  Country: EU (occurrence: EU)
  Receive Date: 20240206
  Receipt Date: 20250818
  Transmission Date: 20251021
  Serious: Yes (Other)
  Sender: SANDOZ
  Company Number: None

PATIENT
  Age: 53 Year
  Sex: Female
  Weight: 54 kg

DRUGS (44)
  1. CAPECITABINE [Suspect]
     Active Substance: CAPECITABINE
     Indication: Breast cancer
     Dosage: 2000 MG,Q3W
     Route: 048
     Dates: start: 20190530, end: 20191125
  2. CAPECITABINE [Suspect]
     Active Substance: CAPECITABINE
     Indication: HER2 positive breast cancer
  3. DOCETAXEL [Suspect]
     Active Substance: DOCETAXEL
     Indication: HER2 positive breast cancer
     Dosage: 75 MG/M2,Q3W (MOST DOSE PRIOR TO EVENT 19 DEC 2018)
     Route: 042
     Dates: start: 20170804, end: 201711
  4. DOCETAXEL [Suspect]
     Active Substance: DOCETAXEL
     Dosage: 120.000MG TIW
     Route: 042
     Dates: start: 20181219, end: 20190503
  5. DOCETAXEL [Suspect]
     Active Substance: DOCETAXEL
     Dosage: 120.000MG TIW
     Route: 042
     Dates: start: 20181219, end: 20190503
  6. DOCETAXEL [Suspect]
     Active Substance: DOCETAXEL
     Indication: HER2 positive breast cancer
     Route: 065
     Dates: start: 20181219, end: 20190503
  7. DOCETAXEL [Suspect]
     Active Substance: DOCETAXEL
     Dosage: 75 MG/M2,Q3W (MOST DOSE PRIOR TO EVENT 19 DEC 2018)
     Route: 041
     Dates: start: 20170804, end: 201711
  8. DOCETAXEL [Suspect]
     Active Substance: DOCETAXEL
     Dosage: 75.000MG/M2 TIW
     Route: 042
     Dates: start: 20170804, end: 201711
  9. DOCETAXEL [Suspect]
     Active Substance: DOCETAXEL
     Dosage: 75.000MG/M2 TIW
     Route: 042
     Dates: start: 20170804, end: 201711
  10. HERCEPTIN [Suspect]
     Active Substance: TRASTUZUMAB
     Indication: HER2 positive breast cancer
     Dosage: 25 MG/M2, TIW
     Route: 042
     Dates: start: 20200218, end: 20201009
  11. HERCEPTIN [Suspect]
     Active Substance: TRASTUZUMAB
     Dosage: 6.000MG/KG TIW
     Route: 042
     Dates: start: 20170824, end: 20180808
  12. HERCEPTIN [Suspect]
     Active Substance: TRASTUZUMAB
     Dosage: 600.000MG TIW
     Route: 042
     Dates: start: 20181219, end: 20191111
  13. HERCEPTIN [Suspect]
     Active Substance: TRASTUZUMAB
     Dosage: 8.000MG/KG QD
     Route: 042
     Dates: start: 20170804, end: 20170804
  14. KADCYLA [Suspect]
     Active Substance: ADO-TRASTUZUMAB EMTANSINE
     Indication: HER2 positive breast cancer
     Dosage: 8 MG/KG, QD
     Route: 042
     Dates: start: 20170804, end: 20170804
  15. LAPATINIB [Suspect]
     Active Substance: LAPATINIB
     Indication: HER2 positive breast cancer
     Dosage: 1250 MG,QD
     Route: 048
     Dates: start: 20191125, end: 20191125
  16. VINORELBINE TARTRATE [Suspect]
     Active Substance: VINORELBINE TARTRATE
     Indication: Product used for unknown indication
     Route: 042
     Dates: start: 20170804, end: 201711
  17. NOLVADEX [Suspect]
     Active Substance: TAMOXIFEN CITRATE
     Indication: HER2 positive breast cancer
     Dosage: 20 MG, QD
     Route: 048
     Dates: start: 201610, end: 201706
  18. PERJETA [Suspect]
     Active Substance: PERTUZUMAB
     Dosage: 420.000MG TIW
     Route: 042
     Dates: start: 20190404, end: 20190624
  19. PERJETA [Suspect]
     Active Substance: PERTUZUMAB
     Indication: HER2 positive breast cancer
     Dosage: 600 MG, Q3W
     Route: 042
     Dates: start: 20181219, end: 20191111
  20. PERJETA [Suspect]
     Active Substance: PERTUZUMAB
     Dosage: 840.000MG QD
     Route: 042
     Dates: start: 20170804, end: 20170804
  21. PERTUZUMAB [Suspect]
     Active Substance: PERTUZUMAB
     Indication: HER2 positive breast cancer
     Dosage: 840 MG,QD
     Route: 042
     Dates: start: 20170804, end: 20170804
  22. TRASTUZUMAB [Suspect]
     Active Substance: TRASTUZUMAB
     Indication: HER2 positive breast cancer
     Dosage: 8 MG/KG,QD
     Route: 065
     Dates: start: 20170804, end: 20170804
  23. ADO-TRASTUZUMAB EMTANSINE [Suspect]
     Active Substance: ADO-TRASTUZUMAB EMTANSINE
     Indication: HER2 positive breast cancer
     Route: 042
     Dates: start: 20180830, end: 201811
  24. TYKERB [Suspect]
     Active Substance: LAPATINIB DITOSYLATE
     Indication: HER2 positive breast cancer
     Dosage: 1250 MG, QD
     Route: 048
     Dates: start: 20191125, end: 20191125
  25. VINORELBINE [Suspect]
     Active Substance: VINORELBINE TARTRATE
     Indication: HER2 positive breast cancer
     Route: 042
     Dates: start: 20200218
  26. XGEVA [Suspect]
     Active Substance: DENOSUMAB
     Indication: HER2 positive breast cancer
     Dosage: 120 MG,Q4W
     Route: 058
     Dates: start: 20181219
  27. GOSERELIN [Suspect]
     Active Substance: GOSERELIN
     Dosage: 3.6 MG, Q4W
     Route: 058
     Dates: start: 201610, end: 201706
  28. GOSERELIN [Suspect]
     Active Substance: GOSERELIN
     Indication: HER2 positive breast cancer
     Route: 065
     Dates: start: 20201208
  29. GENTAMICIN [Concomitant]
     Active Substance: GENTAMICIN
     Indication: Product used for unknown indication
     Route: 042
     Dates: start: 20170824, end: 20180808
  30. MANNITOL [Concomitant]
     Active Substance: MANNITOL
     Route: 042
     Dates: start: 20200421, end: 20200508
  31. MANNITOL [Concomitant]
     Active Substance: MANNITOL
     Indication: Product used for unknown indication
     Route: 042
     Dates: start: 20170824, end: 20180808
  32. METRONIDAZOLE [Concomitant]
     Active Substance: METRONIDAZOLE
     Route: 048
     Dates: start: 20200512, end: 20200518
  33. METRONIDAZOLE [Concomitant]
     Active Substance: METRONIDAZOLE
     Indication: Product used for unknown indication
     Route: 042
     Dates: start: 20200421, end: 20200508
  34. MORPHINE [Concomitant]
     Active Substance: MORPHINE
     Indication: Product used for unknown indication
     Route: 042
     Dates: start: 20180830, end: 201811
  35. MORPHINE [Concomitant]
     Active Substance: MORPHINE
     Route: 065
  36. MORPHINE [Concomitant]
     Active Substance: MORPHINE
     Route: 065
  37. FAMOTIDINE [Concomitant]
     Active Substance: FAMOTIDINE
     Dosage: 40 MG, QD
     Route: 042
     Dates: start: 20200512, end: 20200528
  38. FAMOTIDINE [Concomitant]
     Active Substance: FAMOTIDINE
     Indication: Gastrointestinal bacterial infection
     Route: 065
  39. RINGERS SOLUTION [Concomitant]
     Active Substance: CALCIUM CHLORIDE\POTASSIUM CHLORIDE\SODIUM CHLORIDE
     Indication: Product used for unknown indication
     Dosage: 840 MG, QD
     Route: 042
     Dates: start: 20170804, end: 20170804
  40. VANCOMYCIN [Concomitant]
     Active Substance: VANCOMYCIN
     Indication: Product used for unknown indication
     Dosage: 3.6 MG, Q4W
     Route: 058
     Dates: start: 201610, end: 201706
  41. VANCOMYCIN [Concomitant]
     Active Substance: VANCOMYCIN
     Dosage: 500 MG, QD
     Route: 048
     Dates: start: 20200512, end: 20200528
  42. FENTANYL CITRATE [Concomitant]
     Active Substance: FENTANYL CITRATE
     Indication: Product used for unknown indication
     Route: 065
  43. XGEVA [Concomitant]
     Active Substance: DENOSUMAB
     Route: 058
     Dates: start: 201808, end: 20201009
  44. XGEVA [Concomitant]
     Active Substance: DENOSUMAB
     Indication: Product used for unknown indication
     Dosage: 40 MG, QD
     Route: 042
     Dates: start: 20200512, end: 20200528

REACTIONS (5)
  - Metastases to spine [Recovered/Resolved]
  - Compression fracture [Recovered/Resolved]
  - Paraparesis [Recovered/Resolved]
  - Gastrointestinal bacterial infection [Recovered/Resolved]
  - Pelvic pain [Not Recovered/Not Resolved]
